FAERS Safety Report 4979357-9 (Version None)
Quarter: 2006Q2

REPORT INFORMATION
  Report Type: 
  Country: None (occurrence: None)
  Receive Date: 20060421
  Receipt Date: 20050901
  Transmission Date: 20061013
  Serious: Yes (Other)
  Sender: FDA-Public Use
  Company Number: US-MERCK-0509USA00456

PATIENT
  Age: 63 Year
  Sex: Male
  Weight: 103 kg

DRUGS (21)
  1. VIOXX [Suspect]
     Indication: RHEUMATOID ARTHRITIS
     Route: 048
     Dates: start: 20000801, end: 20030101
  2. CODEINE [Concomitant]
     Route: 065
  3. TRAZODONE HYDROCHLORIDE [Concomitant]
     Route: 065
  4. IBUPROFEN [Concomitant]
     Route: 065
  5. TRIAMCINOLONE [Concomitant]
     Route: 065
  6. LIPITOR [Concomitant]
     Route: 065
  7. CLOBETASOL PROPIONATE [Concomitant]
     Route: 065
  8. CEPHALEXIN [Concomitant]
     Route: 065
  9. CLARITIN [Concomitant]
     Route: 065
  10. CIPRO [Concomitant]
     Route: 065
  11. CLINDAMYCIN [Concomitant]
     Route: 065
  12. ERYTHROCIN [Concomitant]
     Route: 065
  13. CLONAZEPAM [Concomitant]
     Route: 065
  14. ZOLOFT [Concomitant]
     Route: 065
  15. HYDROXYZINE HYDROCHLORIDE [Concomitant]
     Route: 065
  16. CIMETIDINE [Concomitant]
     Route: 065
  17. HYDROCORTISONE [Concomitant]
     Route: 065
  18. PROTOPIC [Concomitant]
     Route: 065
  19. DIPHENHYDRAMINE HYDROCHLORIDE [Concomitant]
     Route: 065
  20. PREVACID [Concomitant]
     Route: 065
  21. [THERAPY UNSPECIFIED] [Concomitant]
     Route: 065

REACTIONS (9)
  - DIASTOLIC DYSFUNCTION [None]
  - DILATATION ATRIAL [None]
  - DIZZINESS [None]
  - GASTRIC DISORDER [None]
  - GASTROOESOPHAGEAL REFLUX DISEASE [None]
  - HERNIA [None]
  - HYPERTENSION [None]
  - MYOCARDIAL INFARCTION [None]
  - VENTRICULAR HYPERTROPHY [None]
